FAERS Safety Report 7020717-2 (Version None)
Quarter: 2010Q3

REPORT INFORMATION
  Report Type: 
  Country: None (occurrence: None)
  Receive Date: 20100929
  Receipt Date: 20100923
  Transmission Date: 20110219
  Serious: Yes (Hospitalization, Other)
  Sender: FDA-Public Use
  Company Number: GR-SANOFI-AVENTIS-2010SA040583

PATIENT
  Age: 40 Year
  Sex: Male

DRUGS (5)
  1. LANTUS [Suspect]
     Route: 058
  2. LANTUS [Suspect]
  3. APIDRA [Suspect]
     Dosage: 6 + 8 + 8 UNITS
     Route: 058
  4. APIDRA [Suspect]
     Dosage: 6 + 8 + 8 UNITS
     Route: 058
  5. GLUCOPHAGE [Concomitant]

REACTIONS (1)
  - BLOOD CREATINE PHOSPHOKINASE INCREASED [None]
